FAERS Safety Report 10724850 (Version 1)
Quarter: 2015Q1

REPORT INFORMATION
  Report Type: Report from Study
  Country: US (occurrence: US)
  Receive Date: 20150120
  Receipt Date: 20150120
  Transmission Date: 20150721
  Serious: Yes (Other)
  Sender: FDA-Public Use
  Company Number: US-JNJFOC-20150105470

PATIENT
  Age: 85 Year
  Sex: Female
  Weight: 56.7 kg

DRUGS (4)
  1. XARELTO [Suspect]
     Active Substance: RIVAROXABAN
     Indication: CEREBROVASCULAR ACCIDENT PROPHYLAXIS
     Dosage: WITH THE EVENING MEAL
     Route: 048
     Dates: start: 201411
  2. TURMERIC [Concomitant]
     Active Substance: TURMERIC
     Route: 065
  3. XARELTO [Suspect]
     Active Substance: RIVAROXABAN
     Indication: ATRIAL FIBRILLATION
     Dosage: WITH THE EVENING MEAL
     Route: 048
     Dates: start: 201411
  4. VITAMIN D3 [Concomitant]
     Active Substance: CHOLECALCIFEROL
     Dosage: DOSE: 2000 (UNITS UNSPECIFIED)
     Route: 065

REACTIONS (3)
  - Urticaria [Not Recovered/Not Resolved]
  - Cardioversion [Unknown]
  - Pruritus [Not Recovered/Not Resolved]

NARRATIVE: CASE EVENT DATE: 201412
